FAERS Safety Report 5259265-9 (Version None)
Quarter: 2007Q1

REPORT INFORMATION
  Report Type: 
  Country: None (occurrence: None)
  Receive Date: 20070308
  Receipt Date: 20070226
  Transmission Date: 20070707
  Serious: Yes (Hospitalization)
  Sender: FDA-Public Use
  Company Number: FR-PFIZER INC-2007016733

PATIENT
  Sex: Male

DRUGS (3)
  1. ATARAX [Suspect]
     Dosage: DAILY DOSE:100MG
     Route: 064
  2. RISPERDAL [Suspect]
     Dosage: DAILY DOSE:2MG
     Route: 064
  3. CITALOPRAM HYDROBROMIDE [Suspect]
     Dosage: DAILY DOSE:100MG
     Route: 064

REACTIONS (3)
  - DRUG EXPOSURE DURING PREGNANCY [None]
  - DRUG WITHDRAWAL SYNDROME NEONATAL [None]
  - TREMOR [None]
